FAERS Safety Report 6624503-4 (Version None)
Quarter: 2010Q1

REPORT INFORMATION
  Report Type: 
  Country: None (occurrence: None)
  Receive Date: 20100310
  Receipt Date: 20100205
  Transmission Date: 20100710
  Serious: No
  Sender: FDA-Public Use
  Company Number: US-BIOGENIDEC-2009BI034078

PATIENT
  Sex: Male

DRUGS (2)
  1. AVONEX [Suspect]
     Indication: DRUG EXPOSURE DURING PREGNANCY
     Route: 064
     Dates: start: 20050604, end: 20080101
  2. AVONEX [Suspect]
     Route: 064
     Dates: start: 20090101

REACTIONS (1)
  - JAUNDICE [None]
